FAERS Safety Report 7626505-8 (Version None)
Quarter: 2011Q3

REPORT INFORMATION
  Report Type: 
  Country: None (occurrence: None)
  Receive Date: 20110721
  Receipt Date: 20110718
  Transmission Date: 20111222
  Serious: Yes (Death)
  Sender: FDA-Public Use
  Company Number: FR-ROCHE-785903

PATIENT
  Sex: Male
  Weight: 70 kg

DRUGS (1)
  1. VALIUM [Suspect]
     Indication: ANXIETY
     Dosage: START DATE REPORTED AS: FOR MORE THAN 2 YEARS. INDICATION REPORTED AS: ANXIETY AND ALCOHOLISM.
     Route: 048

REACTIONS (1)
  - DEATH [None]
